FAERS Safety Report 12234562 (Version 3)
Quarter: 2016Q2

REPORT INFORMATION
  Report Type: Report from Study
  Country: US (occurrence: US)
  Receive Date: 20160404
  Receipt Date: 20160504
  Transmission Date: 20160815
  Serious: No
  Sender: FDA-Public Use
  Company Number: PHEH2016US008071

PATIENT
  Sex: Female

DRUGS (1)
  1. ENTRESTO [Suspect]
     Active Substance: SACUBITRIL\VALSARTAN
     Indication: CARDIAC FAILURE CONGESTIVE
     Dosage: 24/26 MG, QD
     Route: 048
     Dates: start: 201508

REACTIONS (9)
  - Arthritis [Unknown]
  - Malaise [Unknown]
  - Mental status changes [Unknown]
  - Dizziness [Unknown]
  - Prescribed underdose [Unknown]
  - Gastroenteritis viral [Unknown]
  - Weight increased [Unknown]
  - Pain [Unknown]
  - Hypotension [Unknown]
